FAERS Safety Report 17791281 (Version 4)
Quarter: 2020Q3

REPORT INFORMATION
  Report Type: Report from Study
  Country: CA (occurrence: CA)
  Receive Date: 20200515
  Receipt Date: 20200713
  Transmission Date: 20201102
  Serious: Yes (Hospitalization, Other)
  Sender: FDA-Public Use
  Company Number: CA-ASTRAZENECA-2020SE10469

PATIENT
  Age: 64 Year
  Sex: Male

DRUGS (19)
  1. HYDROMOPHONE [Concomitant]
     Route: 065
  2. APO?PREDNISONE [Concomitant]
     Active Substance: PREDNISONE
     Route: 065
  3. SPIRIVA [Concomitant]
     Active Substance: TIOTROPIUM BROMIDE MONOHYDRATE
     Route: 065
  4. FASENRA [Suspect]
     Active Substance: BENRALIZUMAB
     Indication: ASTHMA
     Dosage: 30.0MG UNKNOWN
     Route: 058
     Dates: start: 20190301
  5. PANTOPRAZOLE [Concomitant]
     Active Substance: PANTOPRAZOLE
     Route: 065
  6. FERROUS FUMARATE [Concomitant]
     Active Substance: FERROUS FUMARATE
  7. ALLOPURINOL. [Concomitant]
     Active Substance: ALLOPURINOL
     Route: 065
  8. SALBUTAMOL [Concomitant]
     Active Substance: ALBUTEROL
     Route: 065
  9. ARANEP [Concomitant]
     Route: 065
  10. METFORMIN [Concomitant]
     Active Substance: METFORMIN HYDROCHLORIDE
     Route: 065
  11. ATORVASTATIN [Concomitant]
     Active Substance: ATORVASTATIN
     Route: 065
  12. SYMBICORT [Concomitant]
     Active Substance: BUDESONIDE\FORMOTEROL FUMARATE DIHYDRATE
     Route: 055
  13. MONTELUKAST [Concomitant]
     Active Substance: MONTELUKAST SODIUM
     Route: 065
  14. METOLAZONE. [Concomitant]
     Active Substance: METOLAZONE
     Route: 065
  15. LINAGLIPTIN [Concomitant]
     Active Substance: LINAGLIPTIN
     Route: 065
  16. DOCUSATE [Concomitant]
     Active Substance: DOCUSATE
     Route: 065
  17. INSULIN [Concomitant]
     Active Substance: INSULIN NOS
     Route: 065
  18. ACCEL?CANDERSARTAN [Concomitant]
     Route: 065
  19. LASIX [Concomitant]
     Active Substance: FUROSEMIDE

REACTIONS (12)
  - Muscle strain [Recovering/Resolving]
  - Sinusitis [Unknown]
  - Nasopharyngitis [Not Recovered/Not Resolved]
  - Pneumonia [Unknown]
  - Nasal congestion [Not Recovered/Not Resolved]
  - Renal failure [Recovering/Resolving]
  - Fall [Unknown]
  - Drug ineffective [Unknown]
  - Generalised oedema [Unknown]
  - Asthma [Unknown]
  - Multiple organ dysfunction syndrome [Recovering/Resolving]
  - Prostatomegaly [Recovering/Resolving]

NARRATIVE: CASE EVENT DATE: 2020
